FAERS Safety Report 10329994 (Version 2)
Quarter: 2014Q3

REPORT INFORMATION
  Report Type: Report from Study
  Country: IT (occurrence: IT)
  Receive Date: 20140721
  Receipt Date: 20140724
  Transmission Date: 20150326
  Serious: Yes (Hospitalization)
  Sender: FDA-Public Use
  Company Number: IT-GLAXOSMITHKLINE-B1015475A

PATIENT
  Age: 48 Year
  Sex: Male
  Weight: 68 kg

DRUGS (4)
  1. PANTORC [Concomitant]
     Active Substance: PANTOPRAZOLE SODIUM
     Indication: PROPHYLAXIS
     Dosage: 40MG PER DAY
     Route: 048
  2. TRAMETINIB [Suspect]
     Active Substance: TRAMETINIB
     Indication: METASTATIC MALIGNANT MELANOMA
     Dosage: 1.5MG PER DAY
     Route: 048
     Dates: start: 20131122
  3. DABRAFENIB [Suspect]
     Active Substance: DABRAFENIB
     Indication: METASTATIC MALIGNANT MELANOMA
     Dosage: 100MG TWICE PER DAY
     Route: 048
     Dates: start: 20131122
  4. CARDIOCOR [Concomitant]
     Indication: PROPHYLAXIS
     Dosage: 1.25MG PER DAY
     Route: 048

REACTIONS (1)
  - Haemorrhage intracranial [Recovered/Resolved]

NARRATIVE: CASE EVENT DATE: 20140710
